FAERS Safety Report 19197027 (Version 1)
Quarter: 2021Q2

REPORT INFORMATION
  Report Type: Spontaneous
  Country: DE (occurrence: DE)
  Receive Date: 20210430
  Receipt Date: 20210430
  Transmission Date: 20210717
  Serious: Yes (Hospitalization, Other)
  Sender: FDA-Public Use
  Company Number: DE-ASPEN-GLO2021DE000687

PATIENT

DRUGS (5)
  1. RIFAMPICIN [Suspect]
     Active Substance: RIFAMPIN
     Indication: TUBERCULOSIS
     Route: 065
  2. AZATHIOPRINE. [Suspect]
     Active Substance: AZATHIOPRINE
     Indication: NEUROSARCOIDOSIS
     Dosage: 150 MG, QD
     Route: 048
     Dates: start: 201508
  3. AZATHIOPRINE. [Suspect]
     Active Substance: AZATHIOPRINE
     Dosage: 125 MG, QD
     Route: 048
     Dates: start: 201611
  4. AZATHIOPRINE. [Suspect]
     Active Substance: AZATHIOPRINE
     Dosage: 100 MG, QD
     Route: 048
     Dates: start: 201711, end: 2020
  5. AZATHIOPRINE. [Suspect]
     Active Substance: AZATHIOPRINE
     Dosage: INITIAL DOSING
     Route: 048
     Dates: start: 2015

REACTIONS (28)
  - Disseminated tuberculosis [Recovering/Resolving]
  - Leukopenia [Recovered/Resolved]
  - Lymphopenia [Recovered/Resolved]
  - Pyrexia [Recovered/Resolved]
  - Pancytopenia [Recovered/Resolved]
  - Anaemia [Recovered/Resolved]
  - Hepatic necrosis [Recovered/Resolved]
  - Bone marrow disorder [Recovered/Resolved]
  - Hypergammaglobulinaemia benign monoclonal [Recovered/Resolved]
  - Abdominal pain upper [Recovered/Resolved]
  - Lymph node tuberculosis [Recovered/Resolved]
  - Disease recurrence [Recovered/Resolved]
  - Fatigue [Recovered/Resolved]
  - Inflammatory marker increased [Recovered/Resolved]
  - Perihepatic abscess [Recovering/Resolving]
  - Tuberculosis [Recovering/Resolving]
  - Myelosuppression [Recovered/Resolved]
  - Neutropenia [Recovered/Resolved]
  - Pleural effusion [Recovered/Resolved]
  - Ascites [Recovered/Resolved]
  - Lymphadenopathy [Recovered/Resolved]
  - Off label use [Unknown]
  - Granulomatous liver disease [Recovered/Resolved]
  - Systemic inflammatory response syndrome [Recovered/Resolved]
  - Systemic bacterial infection [Recovered/Resolved]
  - Extrapulmonary tuberculosis [Recovered/Resolved]
  - Thrombocytopenia [Recovered/Resolved]
  - Marrow hyperplasia [Recovered/Resolved]

NARRATIVE: CASE EVENT DATE: 2020
